FAERS Safety Report 8421844-5 (Version None)
Quarter: 2012Q2

REPORT INFORMATION
  Report Type: 
  Country: None (occurrence: None)
  Receive Date: 20120608
  Receipt Date: 20120530
  Transmission Date: 20120825
  Serious: Yes (Hospitalization)
  Sender: FDA-Public Use
  Company Number: FR-ASTRAZENECA-2012SE31518

PATIENT
  Sex: Male

DRUGS (6)
  1. PENTOXIFYLLINE [Suspect]
     Indication: CARDIOMYOPATHY
     Route: 048
     Dates: start: 20060101, end: 20111205
  2. LASIX [Suspect]
     Route: 048
     Dates: end: 20111205
  3. PERINDOPRIL ERBUMINE [Suspect]
     Route: 048
  4. CRESTOR [Suspect]
     Route: 048
  5. BISOPROLOL FUMARATE [Suspect]
     Route: 048
  6. ASPIRIN [Suspect]
     Route: 048

REACTIONS (1)
  - LEUKOCYTOCLASTIC VASCULITIS [None]
